FAERS Safety Report 6067536-1 (Version None)
Quarter: 2009Q1

REPORT INFORMATION
  Report Type: 
  Country: None (occurrence: None)
  Receive Date: 20090205
  Receipt Date: 20081210
  Transmission Date: 20090719
  Serious: Yes (Hospitalization)
  Sender: FDA-Public Use
  Company Number: PHHY2008FR31800

PATIENT
  Sex: Male

DRUGS (6)
  1. LEPONEX [Suspect]
     Dosage: 0.5 DF/DAY
     Route: 048
     Dates: start: 20081101, end: 20081126
  2. DEPAKENE [Suspect]
     Indication: EPILEPSY
     Dosage: 750 MG, QD
     Route: 048
  3. MIRTAZAPINE [Suspect]
     Indication: DEPRESSION
     Dosage: 1 DF, QD
     Route: 048
  4. SEROPRAM [Suspect]
     Indication: DEPRESSION
     Dosage: 20 MG, QD
     Route: 048
  5. LOVENOX [Concomitant]
     Indication: DEEP VEIN THROMBOSIS
     Route: 058
  6. FORLAX [Concomitant]
     Dosage: UNK

REACTIONS (3)
  - ILIAC ARTERY THROMBOSIS [None]
  - VENA CAVA EMBOLISM [None]
  - VENOUS THROMBOSIS [None]
